FAERS Safety Report 8459981-1 (Version None)
Quarter: 2012Q2

REPORT INFORMATION
  Report Type: 
  Country: None (occurrence: None)
  Receive Date: 20120622
  Receipt Date: 20120620
  Transmission Date: 20120825
  Serious: Yes (Other)
  Sender: FDA-Public Use
  Company Number: PHEH2011US00479

PATIENT
  Sex: Female

DRUGS (10)
  1. TOPAMAX [Concomitant]
  2. COMPAZINE [Concomitant]
     Dosage: 10 MG, PRN
  3. ZOMETA [Suspect]
  4. BACLOFEN [Concomitant]
  5. NEXIUM [Concomitant]
  6. REGLAN [Concomitant]
     Dosage: 10 MG, TID
  7. OXYCONTIN [Concomitant]
     Dosage: 80 MG,
  8. DIOVAN HCT [Concomitant]
     Dosage: 1 DF(80/12.5 MG PRN)
  9. PROTONIX [Concomitant]
     Dosage: 40 MG, QD
  10. CELEBREX [Concomitant]
     Dosage: 200 MG, BID

REACTIONS (71)
  - INJURY [None]
  - DIZZINESS [None]
  - VISION BLURRED [None]
  - DYSPHAGIA [None]
  - DERMATITIS CONTACT [None]
  - PURPURA [None]
  - CORONARY ARTERY DISEASE [None]
  - BURSITIS [None]
  - ABDOMINAL PAIN [None]
  - EMOTIONAL DISTRESS [None]
  - MOUTH ULCERATION [None]
  - ORAL NEOPLASM [None]
  - CHONDROMALACIA [None]
  - MIGRAINE [None]
  - CARPAL TUNNEL SYNDROME [None]
  - NEPHROLITHIASIS [None]
  - JOINT SWELLING [None]
  - ACQUIRED OESOPHAGEAL WEB [None]
  - VITAMIN B1 DEFICIENCY [None]
  - PANCREATIC CARCINOMA [None]
  - HEPATIC STEATOSIS [None]
  - SCIATICA [None]
  - OSTEOARTHRITIS [None]
  - OSTEONECROSIS OF JAW [None]
  - ANXIETY [None]
  - JAW FRACTURE [None]
  - IRRITABLE BOWEL SYNDROME [None]
  - FIBROMYALGIA [None]
  - SPINAL OSTEOARTHRITIS [None]
  - OESOPHAGEAL STENOSIS [None]
  - CARDIOMEGALY [None]
  - BREAST MASS [None]
  - CHRONIC OBSTRUCTIVE PULMONARY DISEASE [None]
  - DEPRESSION [None]
  - GASTRITIS EROSIVE [None]
  - GASTROOESOPHAGEAL REFLUX DISEASE [None]
  - RENAL FAILURE ACUTE [None]
  - SCOLIOSIS [None]
  - NEURITIS [None]
  - OVARIAN CANCER STAGE I [None]
  - OESOPHAGEAL DILATATION [None]
  - MORTON'S NEUROMA [None]
  - EXPOSED BONE IN JAW [None]
  - HYDRONEPHROSIS [None]
  - LIP AND/OR ORAL CAVITY CANCER [None]
  - PAIN [None]
  - INFECTION [None]
  - TREMOR [None]
  - HIATUS HERNIA [None]
  - DIABETES MELLITUS [None]
  - FOLLICULITIS [None]
  - SEBORRHOEIC KERATOSIS [None]
  - KERATOSIS PILARIS [None]
  - SINUSITIS [None]
  - HEAD AND NECK CANCER [None]
  - INTERVERTEBRAL DISC DEGENERATION [None]
  - INTERVERTEBRAL DISC PROTRUSION [None]
  - CERVICAL SPINE FLATTENING [None]
  - DEFORMITY [None]
  - MUCOEPIDERMOID CARCINOMA [None]
  - CYSTITIS [None]
  - RASH [None]
  - GLAUCOMA [None]
  - SPINAL COLUMN STENOSIS [None]
  - SPONDYLOLISTHESIS [None]
  - RADICULITIS CERVICAL [None]
  - CONSTIPATION [None]
  - WEIGHT INCREASED [None]
  - MELANOCYTIC NAEVUS [None]
  - HAEMANGIOMA [None]
  - NAUSEA [None]
